FAERS Safety Report 8310290-0 (Version None)
Quarter: 2012Q2

REPORT INFORMATION
  Report Type: 
  Country: None (occurrence: None)
  Receive Date: 20120425
  Receipt Date: 20120421
  Transmission Date: 20120825
  Serious: No
  Sender: FDA-Public Use
  Company Number: US-PFIZER INC-2012098705

PATIENT
  Sex: Female
  Weight: 108 kg

DRUGS (2)
  1. LIPITOR [Suspect]
     Indication: BLOOD CHOLESTEROL INCREASED
     Dosage: UNK, DAILY
     Dates: start: 20120302
  2. LIPITOR [Suspect]
     Indication: CEREBROVASCULAR ACCIDENT

REACTIONS (3)
  - FLATULENCE [None]
  - ABNORMAL FAECES [None]
  - DIARRHOEA [None]
